FAERS Safety Report 17823458 (Version 1)
Quarter: 2020Q2

REPORT INFORMATION
  Report Type: Spontaneous
  Country: US (occurrence: US)
  Receive Date: 20200522
  Receipt Date: 20200522
  Transmission Date: 20200714
  Serious: Yes (Hospitalization)
  Sender: FDA-Public Use
  Company Number: None

PATIENT
  Age: 61 Year
  Sex: Female

DRUGS (50)
  1. LOPERAMIDE [Concomitant]
     Active Substance: LOPERAMIDE
  2. METOPROL TAR [Concomitant]
  3. MYCOPHENOLAT [Concomitant]
     Active Substance: MYCOPHENOLATE MOFETIL
  4. ALLOPURINOL. [Concomitant]
     Active Substance: ALLOPURINOL
  5. COUGH SYP [Concomitant]
  6. EUCERIN [Concomitant]
     Active Substance: ENSULIZOLE\EUCERIN\OCTINOXATE\OCTISALATE\TITANIUM DIOXIDE\ZINC OXIDE
  7. GABAPENTIN. [Concomitant]
     Active Substance: GABAPENTIN
  8. MIDODRINE [Concomitant]
     Active Substance: MIDODRINE
  9. PANTOPRAZOLE [Concomitant]
     Active Substance: PANTOPRAZOLE
  10. PEG 3350 [Concomitant]
     Active Substance: POLYETHYLENE GLYCOL 3350
  11. TORSEMIDE. [Concomitant]
     Active Substance: TORSEMIDE
  12. ZARXIO [Concomitant]
     Active Substance: FILGRASTIM-SNDZ
  13. ACETAMIN [Concomitant]
     Active Substance: ACETAMINOPHEN
  14. ATOVAQONE [Concomitant]
  15. DAPSONE. [Concomitant]
     Active Substance: DAPSONE
  16. FUROSEMIDE. [Concomitant]
     Active Substance: FUROSEMIDE
  17. JANUVIA [Concomitant]
     Active Substance: SITAGLIPTIN PHOSPHATE
  18. NITROFURANTIN [Concomitant]
     Active Substance: NITROFURANTOIN
  19. PROMACTA [Suspect]
     Active Substance: ELTROMBOPAG OLAMINE
     Indication: THROMBOCYTOPENIA
     Dosage: ?          OTHER DOSE:1 TAB;?
     Route: 048
     Dates: start: 20200331
  20. ALBUTEROL NEB [Concomitant]
     Active Substance: ALBUTEROL
  21. AMINOCAPRAC [Concomitant]
  22. LORAZEPAM. [Concomitant]
     Active Substance: LORAZEPAM
  23. MAG OXIDE [Concomitant]
     Active Substance: MAGNESIUM OXIDE
  24. TACROLIMUS. [Concomitant]
     Active Substance: TACROLIMUS
  25. CLONIDINE. [Concomitant]
     Active Substance: CLONIDINE
  26. DIPHENYDRAM [Concomitant]
  27. LEVOFLOXACIN. [Concomitant]
     Active Substance: LEVOFLOXACIN
  28. MAALOX ADVAN [Concomitant]
  29. NYSTATIN. [Concomitant]
     Active Substance: NYSTATIN
  30. PROCHLORPER [Concomitant]
  31. DIPHEN/ATROP [Concomitant]
     Active Substance: ATROPINE SULFATE\DIPHENOXYLATE
  32. DRONABINOL. [Concomitant]
     Active Substance: DRONABINOL
  33. MELATONIN [Concomitant]
     Active Substance: MELATONIN
  34. NEBUPENT [Concomitant]
     Active Substance: PENTAMIDINE ISETHIONATE
  35. NOVOLOG [Concomitant]
     Active Substance: INSULIN ASPART
  36. PREVYMIS [Concomitant]
     Active Substance: LETERMOVIR
  37. TRAMADOL HCL [Concomitant]
     Active Substance: TRAMADOL HYDROCHLORIDE
  38. ZOLPIDEM [Concomitant]
     Active Substance: ZOLPIDEM TARTRATE
  39. CEFEPIME [Concomitant]
     Active Substance: CEFEPIME HYDROCHLORIDE
  40. DOCUSATE SOD [Concomitant]
  41. HEPARIN SOD [Concomitant]
     Active Substance: HEPARIN SODIUM
  42. LEVALBUTEROL NEB [Concomitant]
  43. METOPROL SUC [Concomitant]
  44. METRONIDAZOL [Concomitant]
     Active Substance: METRONIDAZOLE
  45. NASAL DECONG [Concomitant]
  46. POSACONAZOLE [Concomitant]
     Active Substance: POSACONAZOLE
  47. VALACYCLOVIR [Concomitant]
     Active Substance: VALACYCLOVIR HYDROCHLORIDE
  48. ACYCLOVIR. [Concomitant]
     Active Substance: ACYCLOVIR
  49. BACITRACIN. [Concomitant]
     Active Substance: BACITRACIN
  50. POT CHLORIDE [Concomitant]
     Active Substance: POTASSIUM CHLORIDE

REACTIONS (4)
  - SARS-CoV-2 test [None]
  - Pyrexia [None]
  - Suspected COVID-19 [None]
  - Pneumonia [None]

NARRATIVE: CASE EVENT DATE: 20200514
